FAERS Safety Report 5309644-6 (Version None)
Quarter: 2007Q2

REPORT INFORMATION
  Report Type: 
  Country: None (occurrence: None)
  Receive Date: 20070427
  Receipt Date: 20060705
  Transmission Date: 20071010
  Serious: No
  Sender: FDA-Public Use
  Company Number: US-GLAXOSMITHKLINE-A0611144A

PATIENT
  Age: 52 Year
  Sex: Female

DRUGS (2)
  1. DEXEDRINE [Suspect]
     Route: 048
     Dates: start: 20010101, end: 20010101
  2. NO CONCURRENT MEDICATION [Concomitant]

REACTIONS (1)
  - DRUG INEFFECTIVE [None]
